APPROVED DRUG PRODUCT: GEMZAR
Active Ingredient: GEMCITABINE HYDROCHLORIDE
Strength: EQ 200MG BASE/VIAL **Federal Register determination that product was not discontinued or withdrawn for safety or effectiveness reasons**
Dosage Form/Route: INJECTABLE;INJECTION
Application: N020509 | Product #001
Applicant: ELI LILLY AND CO
Approved: May 15, 1996 | RLD: Yes | RS: No | Type: DISCN